FAERS Safety Report 20513777 (Version 1)
Quarter: 2022Q1

REPORT INFORMATION
  Report Type: Spontaneous
  Country: US (occurrence: US)
  Receive Date: 20220224
  Receipt Date: 20220224
  Transmission Date: 20220424
  Serious: No
  Sender: FDA-Public Use
  Company Number: US-AMNEAL PHARMACEUTICALS-2021-AMRX-02582

PATIENT
  Sex: Male

DRUGS (4)
  1. RYTARY [Suspect]
     Active Substance: CARBIDOPA\LEVODOPA
     Indication: Parkinson^s disease
     Dosage: 36.25/145MG, 2 CAPSULES, 4X/DAY
     Route: 048
     Dates: start: 202105, end: 2021
  2. RYTARY [Suspect]
     Active Substance: CARBIDOPA\LEVODOPA
     Dosage: 36.25/145 MG 5 CAPSULES, DAILY (2CAPS 2PM, 2 CAPS 5PM AND 01 CAP AT BEDTIME)
     Route: 048
     Dates: start: 2021
  3. RYTARY [Suspect]
     Active Substance: CARBIDOPA\LEVODOPA
     Dosage: 36.25/145 MG, 2 CAPSULES, 2X/DAY (2PM AND 5PM)
     Route: 048
     Dates: start: 2021
  4. RYTARY [Suspect]
     Active Substance: CARBIDOPA\LEVODOPA
     Dosage: 48.75/195 MG, 2 CAPSULES, 2X/DAY (8AM AND 11AM)
     Route: 048
     Dates: start: 2021

REACTIONS (4)
  - Therapeutic response shortened [Unknown]
  - Fatigue [Unknown]
  - Malaise [Unknown]
  - Delusion [Unknown]

NARRATIVE: CASE EVENT DATE: 20210101
